FAERS Safety Report 19289483 (Version 2)
Quarter: 2021Q2

REPORT INFORMATION
  Report Type: Spontaneous
  Country: ES (occurrence: ES)
  Receive Date: 20210521
  Receipt Date: 20210526
  Transmission Date: 20210717
  Serious: Yes (Hospitalization, Other)
  Sender: FDA-Public Use
  Company Number: ES-009507513-2105ESP004931

PATIENT
  Age: 67 Year
  Sex: Male

DRUGS (12)
  1. LACIDIPINE [Concomitant]
     Active Substance: LACIDIPINE
     Dosage: 6MG / 24H
  2. METFORMIN [Concomitant]
     Active Substance: METFORMIN HYDROCHLORIDE
     Dosage: 1?1?0
  3. CUBICIN [Suspect]
     Active Substance: DAPTOMYCIN
     Indication: INFECTIVE SPONDYLITIS
     Dosage: 10MG/KG/DAY
     Route: 042
     Dates: start: 20191015, end: 20191112
  4. BISOPROLOL [Concomitant]
     Active Substance: BISOPROLOL
     Dosage: 5MG / 24H
  5. NOVORAPID [Concomitant]
     Active Substance: INSULIN ASPART
     Dosage: 20 IU / 24H
  6. OMEPRAZOLE. [Concomitant]
     Active Substance: OMEPRAZOLE
     Dosage: 20MG / 24H
  7. ACETYLSALICYLIC ACID [Concomitant]
     Active Substance: ASPIRIN
     Dosage: 10MG / 24H
  8. ENALAPRIL [Concomitant]
     Active Substance: ENALAPRIL
     Dosage: 5MG / 24H
  9. INSULIN GLARGINE [Concomitant]
     Active Substance: INSULIN GLARGINE
     Dosage: 50 IU / 24H
  10. FROSINOR [Concomitant]
     Active Substance: PAROXETINE HYDROCHLORIDE
     Dosage: 20 MG, DAILY
  11. TEDIZOLID PHOSPHATE. [Suspect]
     Active Substance: TEDIZOLID PHOSPHATE
     Indication: INFECTIVE SPONDYLITIS
     Dosage: UNK
     Route: 048
     Dates: start: 20191112, end: 20200103
  12. TORASEMIDE [Concomitant]
     Active Substance: TORSEMIDE
     Dosage: 10MG / 24H

REACTIONS (9)
  - Hypertensive cardiomyopathy [Unknown]
  - Acute kidney injury [Recovering/Resolving]
  - Pain [Unknown]
  - Ischaemic cardiomyopathy [Unknown]
  - Weight decreased [Unknown]
  - Aortic valve incompetence [Unknown]
  - Tubulointerstitial nephritis [Recovering/Resolving]
  - Post infection glomerulonephritis [Recovered/Resolved]
  - Rehabilitation therapy [Unknown]

NARRATIVE: CASE EVENT DATE: 2019
